FAERS Safety Report 8554878-0 (Version None)
Quarter: 2012Q3

REPORT INFORMATION
  Report Type: 
  Country: None (occurrence: None)
  Receive Date: 20120731
  Receipt Date: 20120726
  Transmission Date: 20120928
  Serious: Yes (Other)
  Sender: FDA-Public Use
  Company Number: US-PFIZER INC-2012182496

PATIENT
  Sex: Female
  Weight: 79.365 kg

DRUGS (1)
  1. ZOLOFT [Suspect]
     Indication: DEPRESSION
     Dosage: UNK, DAILY

REACTIONS (8)
  - SUICIDE ATTEMPT [None]
  - ASTHENIA [None]
  - DRUG INEFFECTIVE [None]
  - DRUG ABUSE [None]
  - FEELING ABNORMAL [None]
  - CRYING [None]
  - PARANOIA [None]
  - DISSOCIATION [None]
